FAERS Safety Report 6956347-8 (Version None)
Quarter: 2010Q3

REPORT INFORMATION
  Report Type: 
  Country: None (occurrence: None)
  Receive Date: 20100830
  Receipt Date: 20100823
  Transmission Date: 20110219
  Serious: Yes (Hospitalization)
  Sender: FDA-Public Use
  Company Number: A0861583A

PATIENT
  Age: 46 Year
  Sex: Female

DRUGS (2)
  1. TYKERB [Suspect]
     Indication: PRODUCT USED FOR UNKNOWN INDICATION
     Dosage: 1250MG PER DAY
     Dates: start: 20100513
  2. XELODA [Suspect]

REACTIONS (7)
  - COUGH [None]
  - DYSPNOEA [None]
  - FATIGUE [None]
  - METASTATIC NEOPLASM [None]
  - PLEURITIC PAIN [None]
  - PNEUMONIA STAPHYLOCOCCAL [None]
  - PYREXIA [None]
